FAERS Safety Report 17044582 (Version 1)
Quarter: 2019Q4

REPORT INFORMATION
  Report Type: Spontaneous
  Country: ES (occurrence: ES)
  Receive Date: 20191118
  Receipt Date: 20191118
  Transmission Date: 20200122
  Serious: Yes (Hospitalization, Other)
  Sender: FDA-Public Use
  Company Number: ES-JUBILANT CADISTA PHARMACEUTICALS-2019JUB00425

PATIENT
  Age: 54 Year
  Sex: Male
  Weight: 74.8 kg

DRUGS (7)
  1. INCB039110 OR PLACEBO [Suspect]
     Active Substance: ITACITINIB
     Dosage: 100 MG, 1X/DAY
     Route: 048
     Dates: start: 20181126, end: 20181204
  2. INCB039110 OR PLACEBO [Suspect]
     Active Substance: ITACITINIB
     Indication: ACUTE GRAFT VERSUS HOST DISEASE
     Dosage: 200 MG, 1X/DAY
     Route: 048
     Dates: start: 20181105, end: 20181114
  3. PREDNISONE. [Suspect]
     Active Substance: PREDNISONE
     Dosage: 70 MG, 1X/DAY
     Route: 048
     Dates: start: 20181116, end: 20181208
  4. MYCOPHENOLATE MOFETIL. [Concomitant]
     Active Substance: MYCOPHENOLATE MOFETIL
     Dosage: UNK
     Dates: start: 20181017
  5. PREDNISONE. [Suspect]
     Active Substance: PREDNISONE
     Indication: ACUTE GRAFT VERSUS HOST DISEASE
     Dosage: 80 MG, 2X/DAY
     Route: 048
     Dates: start: 20181104, end: 20181115
  6. PREDNISONE. [Suspect]
     Active Substance: PREDNISONE
     Dosage: 30 MG, 1X/DAY
     Route: 048
     Dates: start: 20181210
  7. SIROLIMUS. [Concomitant]
     Active Substance: SIROLIMUS
     Dosage: UNK
     Dates: start: 20181017

REACTIONS (3)
  - Alanine aminotransferase increased [Recovering/Resolving]
  - Hypofibrinogenaemia [Recovered/Resolved]
  - Toxic encephalopathy [Recovered/Resolved]

NARRATIVE: CASE EVENT DATE: 20181114
